FAERS Safety Report 4376983-5 (Version None)
Quarter: 2004Q2

REPORT INFORMATION
  Report Type: 
  Country: None (occurrence: None)
  Receive Date: 20040614
  Receipt Date: 20040604
  Transmission Date: 20050107
  Serious: Yes (Life-Threatening, Hospitalization)
  Sender: FDA-Public Use
  Company Number: FR-AMGEN-UK078928

PATIENT
  Age: 69 Year
  Sex: Female
  Weight: 59 kg

DRUGS (4)
  1. NEULASTA [Suspect]
     Indication: CHEMOTHERAPY
     Route: 058
     Dates: start: 20040130, end: 20040130
  2. BLEOMYCIN [Concomitant]
     Dates: start: 20030101
  3. VINCRISTINE [Concomitant]
     Dates: start: 20030101
  4. VEPESID [Concomitant]
     Dates: start: 20030101

REACTIONS (8)
  - ASTHENIA [None]
  - BONE PAIN [None]
  - COUGH [None]
  - DYSPNOEA [None]
  - HYPOXIA [None]
  - INTERSTITIAL LUNG DISEASE [None]
  - PYREXIA [None]
  - TYPE III IMMUNE COMPLEX MEDIATED REACTION [None]
